FAERS Safety Report 25974544 (Version 1)
Quarter: 2025Q4

REPORT INFORMATION
  Report Type: Spontaneous
  Country: GB (occurrence: GB)
  Receive Date: 20251029
  Receipt Date: 20251029
  Transmission Date: 20260117
  Serious: Yes (Other)
  Sender: MYLAN
  Company Number: GB-MHRA-TPP18440587C11585041YC1761205113180

PATIENT
  Age: 68 Year
  Sex: Female
  Weight: 80 kg

DRUGS (56)
  1. ATORVASTATIN [Suspect]
     Active Substance: ATORVASTATIN
     Indication: Ill-defined disorder
     Dosage: 20 MILLIGRAM, QD
     Dates: start: 20251007
  2. ATORVASTATIN [Suspect]
     Active Substance: ATORVASTATIN
     Dosage: 20 MILLIGRAM, QD
     Route: 065
     Dates: start: 20251007
  3. ATORVASTATIN [Suspect]
     Active Substance: ATORVASTATIN
     Dosage: 20 MILLIGRAM, QD
     Route: 065
     Dates: start: 20251007
  4. ATORVASTATIN [Suspect]
     Active Substance: ATORVASTATIN
     Dosage: 20 MILLIGRAM, QD
     Dates: start: 20251007
  5. PREDNISOLONE [Concomitant]
     Active Substance: PREDNISOLONE
     Indication: Ill-defined disorder
     Dosage: 5 DOSAGE FORM, QD (ON COMPLETION OF 30MG COURSE,  TAKE FIVE TABLETS (25MG) ONCE A DAY FOR EIGHT WEEKS)
     Dates: start: 20250828, end: 20251023
  6. PREDNISOLONE [Concomitant]
     Active Substance: PREDNISOLONE
     Dosage: 5 DOSAGE FORM, QD (ON COMPLETION OF 30MG COURSE,  TAKE FIVE TABLETS (25MG) ONCE A DAY FOR EIGHT WEEKS)
     Route: 065
     Dates: start: 20250828, end: 20251023
  7. PREDNISOLONE [Concomitant]
     Active Substance: PREDNISOLONE
     Dosage: 5 DOSAGE FORM, QD (ON COMPLETION OF 30MG COURSE,  TAKE FIVE TABLETS (25MG) ONCE A DAY FOR EIGHT WEEKS)
     Route: 065
     Dates: start: 20250828, end: 20251023
  8. PREDNISOLONE [Concomitant]
     Active Substance: PREDNISOLONE
     Dosage: 5 DOSAGE FORM, QD (ON COMPLETION OF 30MG COURSE,  TAKE FIVE TABLETS (25MG) ONCE A DAY FOR EIGHT WEEKS)
     Dates: start: 20250828, end: 20251023
  9. FLUCLOXACILLIN [Concomitant]
     Active Substance: FLUCLOXACILLIN
     Indication: Ill-defined disorder
     Dosage: 1 DOSAGE FORM, QID (TAKE ONE 4 TIMES/DAY)
     Dates: start: 20250806, end: 20250813
  10. FLUCLOXACILLIN [Concomitant]
     Active Substance: FLUCLOXACILLIN
     Dosage: 1 DOSAGE FORM, QID (TAKE ONE 4 TIMES/DAY)
     Route: 065
     Dates: start: 20250806, end: 20250813
  11. FLUCLOXACILLIN [Concomitant]
     Active Substance: FLUCLOXACILLIN
     Dosage: 1 DOSAGE FORM, QID (TAKE ONE 4 TIMES/DAY)
     Route: 065
     Dates: start: 20250806, end: 20250813
  12. FLUCLOXACILLIN [Concomitant]
     Active Substance: FLUCLOXACILLIN
     Dosage: 1 DOSAGE FORM, QID (TAKE ONE 4 TIMES/DAY)
     Dates: start: 20250806, end: 20250813
  13. NYSTATIN [Concomitant]
     Active Substance: NYSTATIN
     Indication: Ill-defined disorder
     Dosage: UNK (USE AS DIRECTED)
  14. NYSTATIN [Concomitant]
     Active Substance: NYSTATIN
     Dosage: UNK (USE AS DIRECTED)
     Route: 065
  15. NYSTATIN [Concomitant]
     Active Substance: NYSTATIN
     Dosage: UNK (USE AS DIRECTED)
     Route: 065
  16. NYSTATIN [Concomitant]
     Active Substance: NYSTATIN
     Dosage: UNK (USE AS DIRECTED)
  17. VOLTAROL [Concomitant]
     Active Substance: DICLOFENAC SODIUM
     Indication: Ill-defined disorder
     Dosage: UNK, TID (APPLY 3 TIMES/DAY)
     Dates: start: 20250902, end: 20250916
  18. VOLTAROL [Concomitant]
     Active Substance: DICLOFENAC SODIUM
     Dosage: UNK, TID (APPLY 3 TIMES/DAY)
     Route: 065
     Dates: start: 20250902, end: 20250916
  19. VOLTAROL [Concomitant]
     Active Substance: DICLOFENAC SODIUM
     Dosage: UNK, TID (APPLY 3 TIMES/DAY)
     Route: 065
     Dates: start: 20250902, end: 20250916
  20. VOLTAROL [Concomitant]
     Active Substance: DICLOFENAC SODIUM
     Dosage: UNK, TID (APPLY 3 TIMES/DAY)
     Dates: start: 20250902, end: 20250916
  21. Lumecare [Concomitant]
     Indication: Ill-defined disorder
     Dosage: 1 GTT DROPS (APPLY ONE DROP INTO THE AFFECTED EYE(S) THREE T.)
     Dates: start: 20250922, end: 20250929
  22. Lumecare [Concomitant]
     Dosage: 1 GTT DROPS (APPLY ONE DROP INTO THE AFFECTED EYE(S) THREE T.)
     Route: 047
     Dates: start: 20250922, end: 20250929
  23. Lumecare [Concomitant]
     Dosage: 1 GTT DROPS (APPLY ONE DROP INTO THE AFFECTED EYE(S) THREE T.)
     Route: 047
     Dates: start: 20250922, end: 20250929
  24. Lumecare [Concomitant]
     Dosage: 1 GTT DROPS (APPLY ONE DROP INTO THE AFFECTED EYE(S) THREE T.)
     Dates: start: 20250922, end: 20250929
  25. EZETIMIBE [Concomitant]
     Active Substance: EZETIMIBE
     Indication: Ill-defined disorder
     Dosage: 1 DOSAGE FORM, QD (TAKE ONE TABLET ONCE A DAY TO LOWER CHOLESTEROL...)
     Dates: start: 20251022
  26. EZETIMIBE [Concomitant]
     Active Substance: EZETIMIBE
     Dosage: 1 DOSAGE FORM, QD (TAKE ONE TABLET ONCE A DAY TO LOWER CHOLESTEROL...)
     Route: 065
     Dates: start: 20251022
  27. EZETIMIBE [Concomitant]
     Active Substance: EZETIMIBE
     Dosage: 1 DOSAGE FORM, QD (TAKE ONE TABLET ONCE A DAY TO LOWER CHOLESTEROL...)
     Route: 065
     Dates: start: 20251022
  28. EZETIMIBE [Concomitant]
     Active Substance: EZETIMIBE
     Dosage: 1 DOSAGE FORM, QD (TAKE ONE TABLET ONCE A DAY TO LOWER CHOLESTEROL...)
     Dates: start: 20251022
  29. AMLODIPINE [Concomitant]
     Active Substance: AMLODIPINE BESYLATE
     Indication: Ill-defined disorder
     Dosage: 1 DOSAGE FORM, QD (TAKE ONE TABLET ONCE A DAY)
     Dates: start: 20241124
  30. AMLODIPINE [Concomitant]
     Active Substance: AMLODIPINE BESYLATE
     Dosage: 1 DOSAGE FORM, QD (TAKE ONE TABLET ONCE A DAY)
     Route: 065
     Dates: start: 20241124
  31. AMLODIPINE [Concomitant]
     Active Substance: AMLODIPINE BESYLATE
     Dosage: 1 DOSAGE FORM, QD (TAKE ONE TABLET ONCE A DAY)
     Route: 065
     Dates: start: 20241124
  32. AMLODIPINE [Concomitant]
     Active Substance: AMLODIPINE BESYLATE
     Dosage: 1 DOSAGE FORM, QD (TAKE ONE TABLET ONCE A DAY)
     Dates: start: 20241124
  33. Oilatum [Concomitant]
     Indication: Ill-defined disorder
     Dosage: UNK, PRN (APPLY TO THE AFFECTED AREA(S) WHEN NECESSARY)
  34. Oilatum [Concomitant]
     Dosage: UNK, PRN (APPLY TO THE AFFECTED AREA(S) WHEN NECESSARY)
     Route: 065
  35. Oilatum [Concomitant]
     Dosage: UNK, PRN (APPLY TO THE AFFECTED AREA(S) WHEN NECESSARY)
     Route: 065
  36. Oilatum [Concomitant]
     Dosage: UNK, PRN (APPLY TO THE AFFECTED AREA(S) WHEN NECESSARY)
  37. FLUTICASONE FUROATE\VILANTEROL TRIFENATATE [Concomitant]
     Active Substance: FLUTICASONE FUROATE\VILANTEROL TRIFENATATE
     Indication: Ill-defined disorder
     Dosage: UNK, QD (~INHALE ONE PUFF ONCE A DAY)
     Dates: start: 20241124
  38. FLUTICASONE FUROATE\VILANTEROL TRIFENATATE [Concomitant]
     Active Substance: FLUTICASONE FUROATE\VILANTEROL TRIFENATATE
     Dosage: UNK, QD (~INHALE ONE PUFF ONCE A DAY)
     Route: 055
     Dates: start: 20241124
  39. FLUTICASONE FUROATE\VILANTEROL TRIFENATATE [Concomitant]
     Active Substance: FLUTICASONE FUROATE\VILANTEROL TRIFENATATE
     Dosage: UNK, QD (~INHALE ONE PUFF ONCE A DAY)
     Route: 055
     Dates: start: 20241124
  40. FLUTICASONE FUROATE\VILANTEROL TRIFENATATE [Concomitant]
     Active Substance: FLUTICASONE FUROATE\VILANTEROL TRIFENATATE
     Dosage: UNK, QD (~INHALE ONE PUFF ONCE A DAY)
     Dates: start: 20241124
  41. VENTOLIN [Concomitant]
     Active Substance: ALBUTEROL SULFATE
     Indication: Ill-defined disorder
     Dosage: UNK, PRN (INHALE TWO PUFFS WHEN NECESSARY )
  42. VENTOLIN [Concomitant]
     Active Substance: ALBUTEROL SULFATE
     Dosage: UNK, PRN (INHALE TWO PUFFS WHEN NECESSARY )
     Route: 055
  43. VENTOLIN [Concomitant]
     Active Substance: ALBUTEROL SULFATE
     Dosage: UNK, PRN (INHALE TWO PUFFS WHEN NECESSARY )
     Route: 055
  44. VENTOLIN [Concomitant]
     Active Substance: ALBUTEROL SULFATE
     Dosage: UNK, PRN (INHALE TWO PUFFS WHEN NECESSARY )
  45. ALENDRONIC ACID [Concomitant]
     Active Substance: ALENDRONIC ACID
     Indication: Ill-defined disorder
     Dosage: 1 DOSAGE FORM, QW (TAKE ONE TABLET ONCE A WEEK)
     Dates: start: 20250522
  46. ALENDRONIC ACID [Concomitant]
     Active Substance: ALENDRONIC ACID
     Dosage: 1 DOSAGE FORM, QW (TAKE ONE TABLET ONCE A WEEK)
     Route: 065
     Dates: start: 20250522
  47. ALENDRONIC ACID [Concomitant]
     Active Substance: ALENDRONIC ACID
     Dosage: 1 DOSAGE FORM, QW (TAKE ONE TABLET ONCE A WEEK)
     Route: 065
     Dates: start: 20250522
  48. ALENDRONIC ACID [Concomitant]
     Active Substance: ALENDRONIC ACID
     Dosage: 1 DOSAGE FORM, QW (TAKE ONE TABLET ONCE A WEEK)
     Dates: start: 20250522
  49. CALCIUM CARBONATE [Concomitant]
     Active Substance: CALCIUM CARBONATE
     Indication: Ill-defined disorder
     Dosage: 1 DOSAGE FORM, BID (TAKE ONE TABLET TWICE A DAY)
     Dates: start: 20250522
  50. CALCIUM CARBONATE [Concomitant]
     Active Substance: CALCIUM CARBONATE
     Dosage: 1 DOSAGE FORM, BID (TAKE ONE TABLET TWICE A DAY)
     Route: 065
     Dates: start: 20250522
  51. CALCIUM CARBONATE [Concomitant]
     Active Substance: CALCIUM CARBONATE
     Dosage: 1 DOSAGE FORM, BID (TAKE ONE TABLET TWICE A DAY)
     Route: 065
     Dates: start: 20250522
  52. CALCIUM CARBONATE [Concomitant]
     Active Substance: CALCIUM CARBONATE
     Dosage: 1 DOSAGE FORM, BID (TAKE ONE TABLET TWICE A DAY)
     Dates: start: 20250522
  53. OMEPRAZOLE [Concomitant]
     Active Substance: OMEPRAZOLE
     Indication: Ill-defined disorder
     Dosage: 1 DOSAGE FORM, QD (TAKE ONE CAPSULE ONCE A DAY)
     Dates: start: 20250902
  54. OMEPRAZOLE [Concomitant]
     Active Substance: OMEPRAZOLE
     Dosage: 1 DOSAGE FORM, QD (TAKE ONE CAPSULE ONCE A DAY)
     Route: 065
     Dates: start: 20250902
  55. OMEPRAZOLE [Concomitant]
     Active Substance: OMEPRAZOLE
     Dosage: 1 DOSAGE FORM, QD (TAKE ONE CAPSULE ONCE A DAY)
     Route: 065
     Dates: start: 20250902
  56. OMEPRAZOLE [Concomitant]
     Active Substance: OMEPRAZOLE
     Dosage: 1 DOSAGE FORM, QD (TAKE ONE CAPSULE ONCE A DAY)
     Dates: start: 20250902

REACTIONS (2)
  - Gastrointestinal disorder [Unknown]
  - Diarrhoea [Recovered/Resolved]
